FAERS Safety Report 5877435-3 (Version None)
Quarter: 2008Q3

REPORT INFORMATION
  Report Type: 
  Country: None (occurrence: None)
  Receive Date: 20080911
  Receipt Date: 20080829
  Transmission Date: 20090109
  Serious: Yes (Death, Hospitalization)
  Sender: FDA-Public Use
  Company Number: GB-RANBAXY-2008RR-17652

PATIENT

DRUGS (2)
  1. ACETAMINOPHEN [Suspect]
     Indication: INFLUENZA
     Route: 048
  2. ACETAMINOPHEN W/ CODEINE [Suspect]
     Indication: INFLUENZA
     Route: 048

REACTIONS (4)
  - ACCIDENTAL OVERDOSE [None]
  - ACUTE HEPATIC FAILURE [None]
  - BRADYCARDIA [None]
  - METABOLIC ACIDOSIS [None]
